FAERS Safety Report 7109296-9 (Version None)
Quarter: 2010Q4

REPORT INFORMATION
  Report Type: 
  Country: None (occurrence: None)
  Receive Date: 20101117
  Receipt Date: 20101109
  Transmission Date: 20110411
  Serious: Yes (Life-Threatening)
  Sender: FDA-Public Use
  Company Number: JP-ABBOTT-10P-087-0679413-00

PATIENT
  Sex: Female

DRUGS (14)
  1. CLARITHROMYCIN [Suspect]
     Indication: BRONCHITIS
     Route: 048
     Dates: start: 20100925, end: 20100930
  2. MUCODYNE [Concomitant]
     Indication: BRONCHITIS
     Dosage: 1500 MG DAILY
     Route: 048
     Dates: start: 20100925, end: 20100930
  3. COUGHNOL [Concomitant]
     Indication: BRONCHITIS
     Dosage: 45 MG DAILY
     Route: 048
     Dates: start: 20100925, end: 20100930
  4. GRIMAC [Concomitant]
     Indication: GASTRITIS
     Dosage: 2000 MG DAILY
     Route: 048
     Dates: start: 20100925, end: 20100930
  5. SALIPARA CODEINE [Concomitant]
     Indication: BRONCHITIS
     Dosage: 6 ML DAILY
     Route: 048
     Dates: start: 20100925, end: 20100930
  6. D ALFA [Concomitant]
     Indication: OSTEOPOROSIS
     Dosage: 1 MCG DAILY
     Route: 048
     Dates: start: 20100903, end: 20101009
  7. TAKEPRON [Concomitant]
     Indication: REFLUX OESOPHAGITIS
     Dosage: 15 MG DAILY
     Route: 048
     Dates: start: 20100903
  8. ALMARL [Concomitant]
     Indication: HYPERTENSION
     Dosage: 5 MG DAILY
     Route: 048
     Dates: start: 20091107, end: 20101009
  9. ALMARL [Concomitant]
     Indication: ESSENTIAL TREMOR
  10. GASMOTIN [Concomitant]
     Indication: GASTRITIS
     Dosage: 15 MG DAILY
     Route: 048
     Dates: start: 20091107, end: 20101009
  11. NEUQUINON [Concomitant]
     Indication: OEDEMA
     Dosage: 30 MG DAILY
     Route: 048
     Dates: start: 20100508, end: 20101009
  12. LIPITOR [Concomitant]
     Indication: HYPERLIPIDAEMIA
     Dosage: 5 MG DAILY
     Route: 048
     Dates: start: 20100410, end: 20101009
  13. MAGLAX [Concomitant]
     Indication: CONSTIPATION
     Dosage: 2 G DAILY
     Route: 048
     Dates: start: 20091107
  14. RECALBON [Concomitant]
     Indication: OSTEOPOROSIS
     Dosage: 1 MG DAILY
     Route: 048
     Dates: end: 20101009

REACTIONS (2)
  - JAUNDICE [None]
  - LIVER DISORDER [None]
